FAERS Safety Report 9640149 (Version 1)
Quarter: 2013Q4

REPORT INFORMATION
  Report Type: Spontaneous
  Country: US (occurrence: US)
  Receive Date: 20131023
  Receipt Date: 20131023
  Transmission Date: 20140711
  Serious: No
  Sender: FDA-Public Use
  Company Number: US-PFIZER INC-2013300962

PATIENT
  Age: 61 Year
  Sex: Male
  Weight: 90.7 kg

DRUGS (10)
  1. XELJANZ [Suspect]
     Dosage: 5 MG 1 TABLET, 2X/DAY
     Route: 048
  2. RESTASIS [Concomitant]
     Dosage: 0.05 %, UNK
  3. AMLODIPINE [Concomitant]
     Dosage: 5 MG, UNK
  4. DIOVAN [Concomitant]
     Dosage: 40 MG, UNK
  5. B COMPLEX [Concomitant]
     Dosage: UNK
  6. ATORVASTATIN [Concomitant]
     Dosage: 10 MG, UNK
  7. VITAMIN C [Concomitant]
     Dosage: 500 MG, UNK
  8. TRAMADOL HYDROCHLORIDE [Concomitant]
     Dosage: 100 MG, UNK
  9. VITAMIN D3 [Concomitant]
     Dosage: 10000 IU, UNK
  10. OMEGA-3 FISH OIL [Concomitant]
     Dosage: 1000 MG, UNK

REACTIONS (4)
  - Asthenia [Unknown]
  - Oral herpes [Unknown]
  - Abdominal discomfort [Unknown]
  - Sinusitis [Unknown]
